FAERS Safety Report 6311744-9 (Version None)
Quarter: 2009Q3

REPORT INFORMATION
  Report Type: 
  Country: None (occurrence: None)
  Receive Date: 20090817
  Receipt Date: 20090807
  Transmission Date: 20100115
  Serious: No
  Sender: FDA-Public Use
  Company Number: US-BAYER-200912793BCC

PATIENT
  Sex: Female

DRUGS (2)
  1. ALEVE (CAPLET) [Suspect]
     Indication: NASOPHARYNGITIS
     Route: 048
     Dates: start: 20090201
  2. ALEVE (CAPLET) [Suspect]
     Dosage: UNIT DOSE: 220 MG
     Route: 048
     Dates: start: 20090731, end: 20090731

REACTIONS (5)
  - FACE OEDEMA [None]
  - LIP SWELLING [None]
  - PRURITUS [None]
  - RASH MACULAR [None]
  - URTICARIA [None]
